FAERS Safety Report 7117884-9 (Version None)
Quarter: 2010Q4

REPORT INFORMATION
  Report Type: 
  Country: None (occurrence: None)
  Receive Date: 20101118
  Receipt Date: 20101118
  Transmission Date: 20110411
  Serious: Yes (Hospitalization)
  Sender: FDA-Public Use
  Company Number: None

PATIENT
  Age: 89 Year
  Sex: Male

DRUGS (1)
  1. SULFAMETHOXAZOLE AND TRIMETHOPRIM [Suspect]
     Dosage: 1 TAB BID PO
     Route: 048
     Dates: start: 20100918, end: 20100928

REACTIONS (1)
  - TUBULOINTERSTITIAL NEPHRITIS [None]
